FAERS Safety Report 21731441 (Version 2)
Quarter: 2022Q4

REPORT INFORMATION
  Report Type: Report from Study
  Country: US (occurrence: US)
  Receive Date: 20221215
  Receipt Date: 20221229
  Transmission Date: 20230113
  Serious: Yes (Hospitalization)
  Sender: FDA-Public Use
  Company Number: US-002147023-NVSC2022US286737

PATIENT
  Sex: Female
  Weight: 122.5 kg

DRUGS (1)
  1. MAYZENT [Suspect]
     Active Substance: SIPONIMOD
     Indication: Product used for unknown indication
     Dosage: 2 MG, QD
     Route: 048
     Dates: start: 20210411, end: 20220212

REACTIONS (3)
  - Subcutaneous abscess [Unknown]
  - Drug hypersensitivity [Unknown]
  - Weight decreased [Unknown]
